FAERS Safety Report 9467609 (Version 1)
Quarter: 2013Q3

REPORT INFORMATION
  Report Type: Spontaneous
  Country: US (occurrence: None)
  Receive Date: 20130819
  Receipt Date: 20130819
  Transmission Date: 20140515
  Serious: No
  Sender: FDA-Public Use
  Company Number: None

PATIENT
  Age: 58 Year
  Sex: Female
  Weight: 74.84 kg

DRUGS (1)
  1. WELCHOL (COLESVELAM) [Suspect]
     Indication: BLOOD CHOLESTEROL INCREASED
     Dosage: 3 PILLS  TWICE DAILY  TAKEN BY MOUTH
     Route: 048
     Dates: start: 20130603, end: 20130813

REACTIONS (2)
  - Fatigue [None]
  - Oropharyngeal pain [None]
